FAERS Safety Report 16775977 (Version 1)
Quarter: 2019Q3

REPORT INFORMATION
  Report Type: Spontaneous
  Country: US (occurrence: US)
  Receive Date: 20190716
  Receipt Date: 20190716
  Transmission Date: 20191005
  Serious: No
  Sender: FDA-Public Use
  Company Number: None

PATIENT
  Sex: Female

DRUGS (17)
  1. TIZANIDINE. [Concomitant]
     Active Substance: TIZANIDINE
  2. PRAVASTATIN. [Concomitant]
     Active Substance: PRAVASTATIN
  3. PIOGLATAZONE [Concomitant]
  4. METOPROLOL ER SUCCINATE [Concomitant]
     Active Substance: METOPROLOL SUCCINATE
  5. TRUCILITY [Concomitant]
  6. AMITRIPTYLINE [Concomitant]
     Active Substance: AMITRIPTYLINE
  7. LISINOPRIL. [Concomitant]
     Active Substance: LISINOPRIL
  8. MELOXICAM. [Concomitant]
     Active Substance: MELOXICAM
  9. LANTUS [Concomitant]
     Active Substance: INSULIN GLARGINE
  10. HUMALOG [Concomitant]
     Active Substance: INSULIN LISPRO
  11. GABAPENTIN. [Concomitant]
     Active Substance: GABAPENTIN
  12. METFORMIN [Concomitant]
     Active Substance: METFORMIN HYDROCHLORIDE
  13. LINZESS [Concomitant]
     Active Substance: LINACLOTIDE
  14. ALLOUPRINOL [Concomitant]
  15. INVOKANA [Suspect]
     Active Substance: CANAGLIFLOZIN
     Dosage: ?          QUANTITY:300 MG MILLIGRAM(S);?
     Route: 048
     Dates: start: 201802, end: 201905
  16. HYDROXYZINE [Concomitant]
     Active Substance: HYDROXYZINE HYDROCHLORIDE
  17. OMEPRAZOLE. [Concomitant]
     Active Substance: OMEPRAZOLE

REACTIONS (3)
  - Pruritus [None]
  - Urinary tract infection [None]
  - Haematochezia [None]
